FAERS Safety Report 13497792 (Version 1)
Quarter: 2017Q2

REPORT INFORMATION
  Report Type: Spontaneous
  Country: GB (occurrence: GB)
  Receive Date: 20170501
  Receipt Date: 20170501
  Transmission Date: 20170830
  Serious: Yes (Other)
  Sender: FDA-Public Use
  Company Number: GB-ASTRAZENECA-2017SE43980

PATIENT

DRUGS (1)
  1. TICAGRELOR [Suspect]
     Active Substance: TICAGRELOR
     Dosage: 90 UNITS
     Route: 048
     Dates: start: 20170424, end: 20170424

REACTIONS (1)
  - Rhythm idioventricular [Recovered/Resolved]

NARRATIVE: CASE EVENT DATE: 20170424
